FAERS Safety Report 25880425 (Version 1)
Quarter: 2025Q4

REPORT INFORMATION
  Report Type: Spontaneous
  Country: US (occurrence: US)
  Receive Date: 20251004
  Receipt Date: 20251004
  Transmission Date: 20260117
  Serious: Yes (Other)
  Sender: AMGEN
  Company Number: US-AMGEN-USASP2025194639

PATIENT
  Age: 35 Week
  Sex: Male

DRUGS (1)
  1. BEVACIZUMAB [Suspect]
     Active Substance: BEVACIZUMAB
     Indication: Retinopathy of prematurity
     Dosage: UNK
     Route: 065

REACTIONS (3)
  - Retinopathy of prematurity [Unknown]
  - Strabismus [Unknown]
  - Off label use [Unknown]
